FAERS Safety Report 7353780-X (Version None)
Quarter: 2011Q1

REPORT INFORMATION
  Report Type: 
  Country: None (occurrence: None)
  Receive Date: 20110315
  Receipt Date: 20110304
  Transmission Date: 20110831
  Serious: Yes (Other)
  Sender: FDA-Public Use
  Company Number: US-PFIZER INC-2011048341

PATIENT
  Sex: Female

DRUGS (4)
  1. ZOLOFT [Suspect]
     Indication: DEPRESSION
     Dosage: 50 MG, UNK
     Route: 048
     Dates: start: 20100801, end: 20110201
  2. LIPITOR [Suspect]
     Dosage: UNK
  3. PROTONIX [Suspect]
     Indication: GASTRITIS
     Dosage: 40 MG, 1X/DAY
     Route: 048
     Dates: start: 20090601
  4. PANTOPRAZOLE [Suspect]
     Indication: GASTRITIS
     Dosage: 40 MG, 1X/DAY
     Dates: start: 20110201

REACTIONS (6)
  - BLOOD CHOLESTEROL INCREASED [None]
  - ARTHRALGIA [None]
  - HEART RATE INCREASED [None]
  - PRURITUS [None]
  - RASH [None]
  - DRUG INEFFECTIVE [None]
